FAERS Safety Report 6604273-6 (Version None)
Quarter: 2010Q1

REPORT INFORMATION
  Report Type: 
  Country: None (occurrence: None)
  Receive Date: 20100226
  Receipt Date: 20090817
  Transmission Date: 20100710
  Serious: No
  Sender: FDA-Public Use
  Company Number: A0799763A

PATIENT
  Age: 11 Year
  Sex: Female

DRUGS (2)
  1. LAMICTAL CD [Suspect]
     Indication: MEDICATION ERROR
     Dosage: 200MG SINGLE DOSE
     Route: 048
     Dates: start: 20090722, end: 20090722
  2. MOTRIN [Concomitant]
     Route: 048

REACTIONS (5)
  - DRUG DISPENSING ERROR [None]
  - HEADACHE [None]
  - INSOMNIA [None]
  - MEDICATION ERROR [None]
  - OROPHARYNGEAL PAIN [None]
